FAERS Safety Report 13529869 (Version 1)
Quarter: 2017Q2

REPORT INFORMATION
  Report Type: Spontaneous
  Country: US (occurrence: US)
  Receive Date: 20170509
  Receipt Date: 20170509
  Transmission Date: 20170830
  Serious: No
  Sender: FDA-Public Use
  Company Number: US-ROCHE-GNE308547

PATIENT
  Age: 40 Year
  Sex: Female
  Weight: 121.22 kg

DRUGS (1)
  1. XOLAIR [Suspect]
     Active Substance: OMALIZUMAB
     Indication: ASTHMA
     Dosage: 300 MG, Q4W
     Route: 065
     Dates: start: 20051109, end: 20101022

REACTIONS (2)
  - Peak expiratory flow rate decreased [None]
  - Chest discomfort [Recovered/Resolved]

NARRATIVE: CASE EVENT DATE: 20101022
